FAERS Safety Report 26051638 (Version 1)
Quarter: 2025Q4

REPORT INFORMATION
  Report Type: Spontaneous
  Country: KW (occurrence: KW)
  Receive Date: 20251117
  Receipt Date: 20251117
  Transmission Date: 20260117
  Serious: Yes (Other)
  Sender: ROCHE
  Company Number: KW-ROCHE-10000434884

PATIENT

DRUGS (2)
  1. TECENTRIQ [Suspect]
     Active Substance: ATEZOLIZUMAB
     Indication: Hepatocellular carcinoma
     Route: 065
     Dates: start: 202310, end: 202501
  2. AVASTIN [Suspect]
     Active Substance: BEVACIZUMAB
     Indication: Hepatocellular carcinoma
     Route: 065
     Dates: start: 202310, end: 202501

REACTIONS (2)
  - Disease progression [Unknown]
  - Alpha 1 foetoprotein increased [Unknown]

NARRATIVE: CASE EVENT DATE: 20250201
